FAERS Safety Report 19430165 (Version 1)
Quarter: 2021Q2

REPORT INFORMATION
  Report Type: Report from Study
  Country: None (occurrence: ES)
  Receive Date: 20210618
  Receipt Date: 20210618
  Transmission Date: 20210717
  Serious: Yes (Life-Threatening, Hospitalization, Other)
  Sender: FDA-Public Use
  Company Number: ES-ABBVIE-21K-144-3952761-00

PATIENT
  Age: 5 Year
  Sex: Female
  Weight: 22.5 kg

DRUGS (33)
  1. FENTANYL. [Suspect]
     Active Substance: FENTANYL
     Dosage: 30 G PRN
     Route: 065
     Dates: start: 20210402, end: 20210402
  2. CLORAZEPATE [Suspect]
     Active Substance: CLORAZEPATE DIPOTASSIUM
     Indication: PRODUCT USED FOR UNKNOWN INDICATION
     Dosage: UNK
     Route: 065
  3. ACETAMINOPHEN. [Concomitant]
     Active Substance: ACETAMINOPHEN
     Indication: SEDATION
     Dosage: 15 MG PRN
     Dates: start: 20210329, end: 20210404
  4. MIDAZOLAM. [Suspect]
     Active Substance: MIDAZOLAM
     Dosage: 0.34 MG/KG, 1X/HOUR
     Route: 065
     Dates: start: 20210402, end: 20210403
  5. FUROSEMIDE. [Concomitant]
     Active Substance: FUROSEMIDE
     Indication: FLUID OVERLOAD
     Dosage: 5 MG, 3X/DAY
     Dates: start: 20210331
  6. EPINEPHRINE. [Concomitant]
     Active Substance: EPINEPHRINE
     Indication: PRODUCT USED FOR UNKNOWN INDICATION
  7. ACETAMINOPHEN. [Concomitant]
     Active Substance: ACETAMINOPHEN
     Indication: ANALGESIC THERAPY
     Dosage: 350 MG, 4X/DAY
     Dates: start: 2021
  8. SEVOFLURANE. [Suspect]
     Active Substance: SEVOFLURANE
     Dosage: 10 ML, 1X/HOUR
     Route: 048
     Dates: start: 20210403, end: 202104
  9. SEVOFLURANE. [Suspect]
     Active Substance: SEVOFLURANE
     Dosage: 0.15 G/KG, CONTINUOUS/MIN
     Route: 048
     Dates: start: 20210405, end: 20210407
  10. MOVANTIK [Suspect]
     Active Substance: NALOXEGOL OXALATE
     Indication: PRODUCT USED FOR UNKNOWN INDICATION
     Dosage: UNK
     Route: 048
  11. KETAMINE [Suspect]
     Active Substance: KETAMINE
     Indication: SEDATION
     Dosage: 1.3 G/KG, 1X/HOUR
     Route: 065
     Dates: start: 20210330, end: 2021
  12. ACETAZOLAMIDE. [Concomitant]
     Active Substance: ACETAZOLAMIDE
     Indication: FISTULA
     Dosage: 120 MG, 2X/DAY
     Dates: start: 20210331, end: 20210403
  13. ACETAZOLAMIDE. [Concomitant]
     Active Substance: ACETAZOLAMIDE
     Indication: UPPER AIRWAY OBSTRUCTION
     Dosage: 5 MG PRN
     Dates: start: 20210403, end: 20210403
  14. MOVANTIK [Suspect]
     Active Substance: NALOXEGOL OXALATE
     Dosage: UNK
     Route: 048
  15. FENTANYL. [Suspect]
     Active Substance: FENTANYL
     Dosage: 25 G PRN
     Route: 065
     Dates: start: 20210403, end: 20210403
  16. KETAMINE [Suspect]
     Active Substance: KETAMINE
     Dosage: 3.8 MG/KG, 1X/HOUR
     Route: 065
     Dates: start: 202104, end: 20210403
  17. MIDAZOLAM. [Suspect]
     Active Substance: MIDAZOLAM
     Indication: SEDATION
     Dosage: 4.1 MG/KG, 1X/HOUR
     Route: 065
     Dates: start: 20210329, end: 202104
  18. RANITIDINE. [Concomitant]
     Active Substance: RANITIDINE
     Indication: PRODUCT USED FOR UNKNOWN INDICATION
     Route: 065
  19. BUDESONIDE. [Concomitant]
     Active Substance: BUDESONIDE
     Indication: UPPER AIRWAY OBSTRUCTION
     Dosage: 2 MG, ONCE
     Dates: start: 20210403, end: 20210403
  20. FENTANYL. [Suspect]
     Active Substance: FENTANYL
     Dosage: 2.5 G/KG, 1X/HOUR
     Route: 065
     Dates: start: 20210403, end: 20210405
  21. KETAMINE [Suspect]
     Active Substance: KETAMINE
     Dosage: 25 MG PRN
     Route: 065
     Dates: start: 20210402, end: 20210403
  22. DEXMEDETOMIDINE. [Suspect]
     Active Substance: DEXMEDETOMIDINE
     Indication: PRODUCT USED FOR UNKNOWN INDICATION
     Dosage: UNK
     Route: 065
  23. MIDAZOLAM. [Suspect]
     Active Substance: MIDAZOLAM
     Dosage: 2.5 MG PRN
     Route: 065
     Dates: start: 202104, end: 20210404
  24. PROPOFOL. [Suspect]
     Active Substance: PROPOFOL
     Indication: PRODUCT USED FOR UNKNOWN INDICATION
     Dosage: 20 MG PRN
     Route: 065
     Dates: start: 20210401, end: 20210403
  25. MACROGOL [Concomitant]
     Active Substance: POLYETHYLENE GLYCOLS
     Indication: CONSTIPATION
     Dosage: 6.9 G, 3X/DAY
     Dates: start: 20210408
  26. FENTANYL. [Suspect]
     Active Substance: FENTANYL
     Indication: PRODUCT USED FOR UNKNOWN INDICATION
     Dosage: 3.5 G/KG, 1X/HOUR
     Route: 065
     Dates: start: 20210329, end: 20210402
  27. AMOXICILLIN+CLAVULANIC ACID [Concomitant]
     Active Substance: AMOXICILLIN\CLAVULANIC ACID
     Indication: PROPHYLAXIS
     Dosage: 575 MG, 3X/DAY
     Dates: start: 20210330, end: 20210403
  28. DEXAMETHASONE. [Concomitant]
     Active Substance: DEXAMETHASONE
     Indication: PRODUCT USED FOR UNKNOWN INDICATION
     Dosage: 4 MG, 3X/DAY
     Dates: start: 20210404
  29. ROCURONIUM [Concomitant]
     Active Substance: ROCURONIUM BROMIDE
     Indication: UPPER AIRWAY OBSTRUCTION
     Dosage: 7 MG PRN
     Dates: start: 20210403, end: 20210404
  30. SEVOFLURANE. [Suspect]
     Active Substance: SEVOFLURANE
     Indication: SEDATION
     Dosage: 0.2 ML PRN
     Route: 048
     Dates: start: 20210403, end: 20210403
  31. REMIFENTANIL HYDROCHLORIDE. [Suspect]
     Active Substance: REMIFENTANIL HYDROCHLORIDE
     Indication: WITHDRAWAL SYNDROME
     Dosage: 5 MG PRN
     Route: 065
     Dates: start: 20210408, end: 20210411
  32. ONDANSETRON [Concomitant]
     Active Substance: ONDANSETRON
     Indication: FEEDING INTOLERANCE
     Dosage: 25 MG, 4X/DAY
     Dates: start: 20210329, end: 2021
  33. CISATRACURIUM. [Concomitant]
     Active Substance: CISATRACURIUM
     Indication: SEDATION
     Dosage: 3 G/KG, CONTINUOUS/MIN
     Dates: start: 20210329, end: 20210404

REACTIONS (3)
  - Off label use [Unknown]
  - Withdrawal syndrome [Recovered/Resolved]
  - Laryngeal obstruction [Recovered/Resolved]

NARRATIVE: CASE EVENT DATE: 2021
